FAERS Safety Report 8518202-1 (Version None)
Quarter: 2012Q3

REPORT INFORMATION
  Report Type: 
  Country: None (occurrence: None)
  Receive Date: 20120718
  Receipt Date: 20111110
  Transmission Date: 20120928
  Serious: No
  Sender: FDA-Public Use
  Company Number: US-BRISTOL-MYERS SQUIBB COMPANY-16212813

PATIENT
  Age: 66 Year
  Sex: Female

DRUGS (1)
  1. WARFARIN SODIUM [Suspect]
     Indication: THROMBOSIS
     Dosage: 7.5 MG 6 TIMES PER WEEK AND 5 MG ON MONDAY.
     Route: 048
     Dates: start: 20090101

REACTIONS (1)
  - MUSCULAR WEAKNESS [None]
